FAERS Safety Report 16045509 (Version 4)
Quarter: 2019Q2

REPORT INFORMATION
  Report Type: Spontaneous
  Country: JP (occurrence: JP)
  Receive Date: 20190307
  Receipt Date: 20190618
  Transmission Date: 20190711
  Serious: Yes (Life-Threatening, Hospitalization)
  Sender: FDA-Public Use
  Company Number: JP-B.I. PHARMACEUTICALS,INC./RIDGEFIELD-2019-NB-000958

PATIENT
  Age: 69 Year
  Sex: Male
  Weight: 58 kg

DRUGS (5)
  1. TRAZENTA [Suspect]
     Active Substance: LINAGLIPTIN
     Indication: DIABETES MELLITUS
     Route: 050
     Dates: start: 20190205, end: 20190206
  2. CORTRIL [Suspect]
     Active Substance: HYDROCORTISONE
     Indication: HYPOPITUITARISM
     Route: 050
     Dates: start: 20190205, end: 20190210
  3. DESMOPRESSIN [Concomitant]
     Active Substance: DESMOPRESSIN
     Indication: HYPOPITUITARISM
     Route: 045
     Dates: start: 20181227
  4. BISONO [Concomitant]
     Active Substance: BISOPROLOL
     Indication: ARRHYTHMIA
     Route: 062
     Dates: start: 20190104
  5. THYRADIN S [Concomitant]
     Active Substance: LEVOTHYROXINE SODIUM
     Indication: HYPOPITUITARISM
     Route: 050
     Dates: start: 20190104

REACTIONS (2)
  - Toxic epidermal necrolysis [Recovered/Resolved]
  - Incorrect route of product administration [Unknown]

NARRATIVE: CASE EVENT DATE: 20190205
